FAERS Safety Report 15299894 (Version 2)
Quarter: 2018Q4

REPORT INFORMATION
  Report Type: Spontaneous
  Country: US (occurrence: US)
  Receive Date: 20180821
  Receipt Date: 20181020
  Transmission Date: 20190204
  Serious: Yes (Hospitalization, Other)
  Sender: FDA-Public Use
  Company Number: US-VIVIMED-2018SP006650

PATIENT
  Age: 65 Year
  Sex: Male

DRUGS (3)
  1. LOSARTAN. [Suspect]
     Active Substance: LOSARTAN
     Indication: HYPERTENSION
     Dosage: UNK
     Route: 065
  2. RIVAROXABAN [Concomitant]
     Active Substance: RIVAROXABAN
     Indication: PULMONARY EMBOLISM
  3. RIVAROXABAN [Concomitant]
     Active Substance: RIVAROXABAN
     Indication: DEEP VEIN THROMBOSIS
     Dosage: UNK
     Route: 065

REACTIONS (6)
  - Abdominal pain [Recovered/Resolved]
  - Cough [Recovered/Resolved]
  - Abdominal distension [Recovered/Resolved]
  - Abdominal wall haematoma [Recovered/Resolved]
  - Contusion [Recovered/Resolved]
  - Abdominal tenderness [Recovered/Resolved]
